FAERS Safety Report 15625845 (Version 2)
Quarter: 2019Q1

REPORT INFORMATION
  Report Type: Report from Study
  Country: IT (occurrence: IT)
  Receive Date: 20181116
  Receipt Date: 20190201
  Transmission Date: 20190417
  Serious: Yes (Other)
  Sender: FDA-Public Use
  Company Number: IT-GLAXOSMITHKLINE-IT2018206101

PATIENT
  Age: 60 Year
  Sex: Female

DRUGS (1)
  1. DICLOFENAC SODIUM. [Suspect]
     Active Substance: DICLOFENAC SODIUM
     Indication: TOOTHACHE
     Dosage: 25 MG, UNK
     Route: 048
     Dates: start: 20171225, end: 20171225

REACTIONS (2)
  - Pruritus [Recovering/Resolving]
  - Erythema [Recovering/Resolving]

NARRATIVE: CASE EVENT DATE: 20171225
